FAERS Safety Report 5906949-2 (Version None)
Quarter: 2008Q4

REPORT INFORMATION
  Report Type: 
  Country: None (occurrence: None)
  Receive Date: 20081002
  Receipt Date: 20081002
  Transmission Date: 20090506
  Serious: Yes (Other)
  Sender: FDA-Public Use
  Company Number: None

PATIENT
  Age: 55 Year
  Sex: Female
  Weight: 79.3795 kg

DRUGS (2)
  1. NIASPAN ER  1000 MG  ABBOTT [Suspect]
     Indication: HYPERCHOLESTEROLAEMIA
     Dosage: 1000 MG DAILY AT H.S. PO
     Route: 048
     Dates: start: 20080926, end: 20080926
  2. NIASPAN ER  1000 MG  ABBOTT [Suspect]
     Indication: HYPERTRIGLYCERIDAEMIA
     Dosage: 1000 MG DAILY AT H.S. PO
     Route: 048
     Dates: start: 20080926, end: 20080926

REACTIONS (2)
  - GENERALISED ERYTHEMA [None]
  - PRURITUS GENERALISED [None]
